FAERS Safety Report 9225952 (Version 1)
Quarter: 2013Q2

REPORT INFORMATION
  Report Type: Spontaneous
  Country: US (occurrence: US)
  Receive Date: 20130411
  Receipt Date: 20130411
  Transmission Date: 20140414
  Serious: No
  Sender: FDA-Public Use
  Company Number: US-ASTELLAS-2012US003589

PATIENT
  Sex: 0

DRUGS (3)
  1. PROTOPIC [Suspect]
     Indication: ECZEMA
     Dosage: 0.1 %, UNKNOWN/D
     Route: 061
     Dates: start: 20120409, end: 20120416
  2. FLUOCINONIDE [Concomitant]
     Indication: LICHEN PLANUS
     Dosage: 0.05 %, UNKNOWN/D
     Route: 065
  3. ACLOVATE [Concomitant]
     Indication: ECZEMA
     Dosage: 0.05 %, UNKNOWN/D
     Route: 061

REACTIONS (1)
  - Application site pain [Recovered/Resolved]
